FAERS Safety Report 9200394 (Version 2)
Quarter: 2013Q2

REPORT INFORMATION
  Report Type: Spontaneous
  Country: DE (occurrence: DE)
  Receive Date: 20130329
  Receipt Date: 20130418
  Transmission Date: 20140414
  Serious: Yes (Other)
  Sender: FDA-Public Use
  Company Number: DE-B.I. PHARMACEUTICALS,INC./RIDGEFIELD-2013-BI-08132GD

PATIENT
  Age: 89 Year
  Sex: Female

DRUGS (8)
  1. BISACODYL [Suspect]
     Dosage: 10 MG
     Route: 054
  2. ALLOPURINOL [Suspect]
     Dosage: 300 MG
  3. NIFEDIPINE SR [Suspect]
     Dosage: 40 MG
  4. ASS [Suspect]
     Indication: CEREBROVASCULAR ACCIDENT PROPHYLAXIS
     Dosage: 100 MG
  5. DIMETINDENE SR [Suspect]
     Dosage: 4 MG
  6. FUROSEMIDE [Suspect]
     Dosage: 40 MG
  7. METFORMIN [Suspect]
     Indication: TYPE 2 DIABETES MELLITUS
     Dosage: 1000 MG
  8. PREDNISOLONE [Suspect]
     Dosage: 10 MG

REACTIONS (10)
  - Drug interaction [Unknown]
  - Hypokalaemia [Unknown]
  - Confusional state [Unknown]
  - Oedema peripheral [Unknown]
  - Muscle spasms [Unknown]
  - Constipation [Unknown]
  - Blood glucose increased [Unknown]
  - Pruritus [Unknown]
  - Asthenia [Unknown]
  - Weight decreased [Unknown]
